FAERS Safety Report 23259465 (Version 1)
Quarter: 2023Q4

REPORT INFORMATION
  Report Type: Spontaneous
  Country: US (occurrence: US)
  Receive Date: 20231204
  Receipt Date: 20231204
  Transmission Date: 20240110
  Serious: Yes (Hospitalization, Other)
  Sender: FDA-Public Use
  Company Number: US-PAIPHARMA-2023-US-040556

PATIENT
  Age: 52 Year
  Sex: Female

DRUGS (3)
  1. LITHIUM [Suspect]
     Active Substance: LITHIUM
     Indication: Bipolar I disorder
     Dosage: 900 MG AT NIGHT
  2. LAMOTRIGINE [Concomitant]
     Active Substance: LAMOTRIGINE
     Dosage: 125 MG TWICE DAILY
  3. FLUPHENAZINE [Concomitant]
     Active Substance: FLUPHENAZINE
     Dosage: 5 MG TWICE DAILY

REACTIONS (2)
  - Central nervous system lesion [Recovered/Resolved]
  - Toxicity to various agents [Recovered/Resolved]
